FAERS Safety Report 6184876-6 (Version None)
Quarter: 2009Q2

REPORT INFORMATION
  Report Type: 
  Country: None (occurrence: None)
  Receive Date: 20090508
  Receipt Date: 20090430
  Transmission Date: 20091009
  Serious: Yes (Other)
  Sender: FDA-Public Use
  Company Number: BR-MERCK-0905BRA00005

PATIENT

DRUGS (5)
  1. ISENTRESS [Suspect]
     Indication: ANTIRETROVIRAL THERAPY
     Route: 065
  2. DARUNAVIR AND RITONAVIR [Concomitant]
     Indication: ANTIRETROVIRAL THERAPY
     Route: 065
  3. ATENOLOL [Concomitant]
     Route: 065
  4. CHLOROQUINE [Concomitant]
     Route: 065
  5. MARAVIROC [Concomitant]
     Route: 065

REACTIONS (2)
  - LIVER DISORDER [None]
  - PORPHYRIA NON-ACUTE [None]
